FAERS Safety Report 10627363 (Version 3)
Quarter: 2014Q4

REPORT INFORMATION
  Report Type: Spontaneous
  Country: AT (occurrence: AT)
  Receive Date: 20141204
  Receipt Date: 20141223
  Transmission Date: 20150529
  Serious: Yes (Hospitalization)
  Sender: FDA-Public Use
  Company Number: AT-GILEAD-2014-0124686

PATIENT
  Age: 87 Year
  Sex: Male
  Weight: 72 kg

DRUGS (23)
  1. PENICILLIN G /00000901/ [Suspect]
     Active Substance: PENICILLIN G
     Indication: ERYSIPELAS
     Dosage: 10 MG, UNK
     Route: 042
     Dates: start: 20141108
  2. LAEVOLAC [Concomitant]
     Active Substance: LACTULOSE
  3. ZANIDIP [Concomitant]
     Active Substance: LERCANIDIPINE HYDROCHLORIDE
     Dosage: 10 MG, UNK
  4. BANEOCIN [Concomitant]
  5. UNASYN                             /00903602/ [Suspect]
     Active Substance: SULTAMICILLIN TOSYLATE
     Indication: ERYSIPELAS
     Dosage: UNK
     Route: 042
     Dates: start: 20141110, end: 20141116
  6. PASPERTIN                          /00041902/ [Concomitant]
     Active Substance: METOCLOPRAMIDE HYDROCHLORIDE
  7. EPOETIN THETA [Concomitant]
     Active Substance: ERYTHROPOIETIN
  8. TRITTICO [Concomitant]
     Active Substance: TRAZODONE HYDROCHLORIDE
     Dosage: 150 MG, UNK
  9. DERMOVATE [Concomitant]
     Active Substance: CLOBETASOL
  10. CLINDAMYCIN [Suspect]
     Active Substance: CLINDAMYCIN\CLINDAMYCIN PHOSPHATE
     Indication: ERYSIPELAS
     Dosage: 600 MG, UNK
     Route: 042
     Dates: start: 20141109, end: 20141120
  11. ATARAX [Concomitant]
     Active Substance: HYDROXYZINE\HYDROXYZINE HYDROCHLORIDE
     Dosage: 25 MG, UNK
  12. ZYDELIG [Suspect]
     Active Substance: IDELALISIB
     Indication: B-CELL LYMPHOMA
     Dosage: 150 MG, UNK
     Route: 048
     Dates: start: 20141103, end: 20141117
  13. OPTIDERM                           /01148801/ [Concomitant]
  14. XYLOCAIN VISCOES [Concomitant]
  15. SEDACORON [Concomitant]
     Active Substance: AMIODARONE HYDROCHLORIDE
     Dosage: 200 MG, UNK
  16. GLANDOMED [Concomitant]
  17. EUTHYROX [Concomitant]
     Active Substance: LEVOTHYROXINE SODIUM
     Dosage: 100 ?G, UNK
  18. AERIUS [Concomitant]
     Active Substance: DESLORATADINE
  19. CLINDAMYCIN [Suspect]
     Active Substance: CLINDAMYCIN\CLINDAMYCIN PHOSPHATE
     Indication: SKIN ULCER
  20. DIBONDRIN [Concomitant]
  21. CANDESARTAN HCT [Concomitant]
     Active Substance: CANDESARTAN CILEXETIL\HYDROCHLOROTHIAZIDE
     Dosage: 5 MG, UNK
  22. FENISTIL [Concomitant]
     Active Substance: DIMETHINDENE
  23. AMPHO MORONAL [Concomitant]

REACTIONS (3)
  - Skin ulcer [None]
  - Psoriasis [Not Recovered/Not Resolved]
  - Mucosal inflammation [None]

NARRATIVE: CASE EVENT DATE: 20141118
